FAERS Safety Report 16467681 (Version 1)
Quarter: 2019Q2

REPORT INFORMATION
  Report Type: Spontaneous
  Country: GB (occurrence: GB)
  Receive Date: 20190624
  Receipt Date: 20190624
  Transmission Date: 20190711
  Serious: Yes (Hospitalization)
  Sender: FDA-Public Use
  Company Number: GB-TEVA-2019-GB-1067436

PATIENT
  Age: 19 Month
  Weight: 10.75 kg

DRUGS (2)
  1. PROPRANOLOL [Suspect]
     Active Substance: PROPRANOLOL HYDROCHLORIDE
     Indication: TACHYCARDIA
     Dosage: 15 MILLIGRAM DAILY; 50MG/5ML. SUGAR FREE
     Route: 048
     Dates: start: 20180501
  2. AMIODARONE [Concomitant]
     Active Substance: AMIODARONE
     Indication: TACHYARRHYTHMIA
     Dosage: 20 MILLIGRAM DAILY; 50MG/5ML
     Route: 048
     Dates: start: 20180501

REACTIONS (1)
  - Hypoglycaemic seizure [Recovered/Resolved]

NARRATIVE: CASE EVENT DATE: 20190511
